FAERS Safety Report 11043035 (Version 4)
Quarter: 2015Q2

REPORT INFORMATION
  Report Type: Spontaneous
  Country: US (occurrence: US)
  Receive Date: 20150417
  Receipt Date: 20150527
  Transmission Date: 20150821
  Serious: Yes (Other)
  Sender: FDA-Public Use
  Company Number: US-JNJFOC-20150411119

PATIENT
  Sex: Female

DRUGS (3)
  1. BENADRYL ALLERGY [Suspect]
     Active Substance: DIPHENHYDRAMINE HYDROCHLORIDE
     Indication: BURNING SENSATION
     Route: 048
  2. OLYSIO [Concomitant]
     Active Substance: SIMEPREVIR
     Indication: HEPATIC CIRRHOSIS
     Route: 065
     Dates: start: 20150116
  3. OLYSIO [Concomitant]
     Active Substance: SIMEPREVIR
     Indication: HEPATITIS C
     Route: 065
     Dates: start: 20150116

REACTIONS (4)
  - Jaundice [Unknown]
  - Somnolence [Unknown]
  - Product use issue [Unknown]
  - Dry skin [Unknown]

NARRATIVE: CASE EVENT DATE: 2015
